FAERS Safety Report 16541939 (Version 1)
Quarter: 2019Q3

REPORT INFORMATION
  Report Type: Spontaneous
  Country: ES (occurrence: ES)
  Receive Date: 20190708
  Receipt Date: 20190708
  Transmission Date: 20191004
  Serious: Yes (Hospitalization, Other)
  Sender: FDA-Public Use
  Company Number: ES-MYLANLABS-2018M1026098

PATIENT
  Age: 68 Year
  Weight: 78 kg

DRUGS (5)
  1. EMCONCOR [Concomitant]
     Active Substance: BISOPROLOL FUMARATE
     Indication: HYPERTENSION
     Dosage: AT BREAKFAST AND DINNER, EVERY 12 HOURS
     Route: 048
  2. HIBOR [Concomitant]
     Indication: THROMBOSIS PROPHYLAXIS
     Dosage: 3500 IU ANTI-XA/0.2 ML SOLUTION FOR INJECTION IN PRE-FILLED SYRINGE; IN THE EVENING
     Route: 058
  3. ESCITALOPRAM [Suspect]
     Active Substance: ESCITALOPRAM OXALATE
     Indication: PRODUCT USED FOR UNKNOWN INDICATION
     Dosage: UNK
     Route: 065
  4. SIMVASTATIN. [Concomitant]
     Active Substance: SIMVASTATIN
     Indication: HYPERCHOLESTEROLAEMIA
     Dosage: AT DINNER
     Route: 048
  5. CIPRALEX [Concomitant]
     Active Substance: ESCITALOPRAM OXALATE
     Indication: ANXIETY
     Dosage: AT BREAKFAST, FOR SEVERAL YEARS
     Dates: start: 2015

REACTIONS (4)
  - Haemodynamic instability [Unknown]
  - Food interaction [Unknown]
  - Drug interaction [Unknown]
  - Haemorrhage [Recovered/Resolved]

NARRATIVE: CASE EVENT DATE: 2015
